FAERS Safety Report 7071267-9 (Version None)
Quarter: 2010Q4

REPORT INFORMATION
  Report Type: 
  Country: None (occurrence: None)
  Receive Date: 20101028
  Receipt Date: 20101028
  Transmission Date: 20110411
  Serious: No
  Sender: FDA-Public Use
  Company Number: None

PATIENT
  Age: 31 Year
  Sex: Female
  Weight: 63.6 kg

DRUGS (5)
  1. ASTELIN [Suspect]
     Indication: COUGH
     Dosage: ASTELIN NASAL SPRAY, 2 SPRAY 1X NOSE
     Route: 045
     Dates: start: 20100201
  2. ASTELIN [Suspect]
     Indication: COUGH
     Dosage: ASTELIN NASAL SPRAY, 2 SPRAY 1X NOSE
     Route: 045
     Dates: start: 20100801
  3. ASTELIN [Suspect]
     Indication: COUGH
     Dosage: ASTELIN NASAL SPRAY, 2 SPRAY 1X NOSE
     Route: 045
     Dates: start: 20100901
  4. MIRTAZAPINE [Concomitant]
  5. VITAMINS [Concomitant]

REACTIONS (4)
  - DYSPNOEA [None]
  - EPISTAXIS [None]
  - LOSS OF CONSCIOUSNESS [None]
  - SCAB [None]
